FAERS Safety Report 8723958 (Version 3)
Quarter: 2012Q4

REPORT INFORMATION
  Report Type: Spontaneous
  Country: None (occurrence: None)
  Receive Date: 20120727
  Receipt Date: 20120824
  Transmission Date: 20130627
  Serious: Yes (Life-Threatening)
  Sender: FDA-Public Use
  Company Number: AUR-APL-2012-03106

PATIENT
  Age: 51 Year
  Sex: Female
  Weight: 55 kg

DRUGS (2)
  1. PERINDOPRIL ERBUMINE [Suspect]
     Indication: DRUG USE FOR UNKNOWN INDICATION
     Dates: start: 20050614
  2. AMOXICILLIN [Concomitant]

REACTIONS (4)
  - Abnormal faeces [None]
  - Faeces discoloured [None]
  - Pregnancy [None]
  - Exposure during pregnancy [None]
